FAERS Safety Report 24401148 (Version 3)
Quarter: 2024Q4

REPORT INFORMATION
  Report Type: Report from Study
  Country: US (occurrence: US)
  Receive Date: 20241006
  Receipt Date: 20241212
  Transmission Date: 20250115
  Serious: Yes (Hospitalization, Other)
  Sender: ABBVIE
  Company Number: US-ABBVIE-5951154

PATIENT
  Age: 55 Year
  Sex: Female

DRUGS (4)
  1. SKYRIZI [Suspect]
     Active Substance: RISANKIZUMAB-RZAA
     Indication: Crohn^s disease
     Dosage: WEEK 12 AND THEN EVERY 8 WEEK
     Route: 058
     Dates: start: 20241113
  2. SKYRIZI [Suspect]
     Active Substance: RISANKIZUMAB-RZAA
     Indication: Crohn^s disease
     Dosage: WEEK 0
     Route: 042
     Dates: start: 202408, end: 202408
  3. SKYRIZI [Suspect]
     Active Substance: RISANKIZUMAB-RZAA
     Indication: Crohn^s disease
     Dosage: WEEK 4
     Route: 042
  4. SKYRIZI [Suspect]
     Active Substance: RISANKIZUMAB-RZAA
     Indication: Crohn^s disease
     Dosage: WEEK 8
     Route: 042
     Dates: start: 20241016, end: 20241016

REACTIONS (10)
  - Infection [Recovered/Resolved]
  - Gallbladder enlargement [Recovered/Resolved]
  - Crohn^s disease [Unknown]
  - Osteoporosis [Unknown]
  - Blood pressure decreased [Unknown]
  - Abnormal faeces [Unknown]
  - Feeling abnormal [Unknown]
  - Urinary tract infection [Unknown]
  - Headache [Unknown]
  - Haemoglobin decreased [Recovering/Resolving]

NARRATIVE: CASE EVENT DATE: 20240101
